FAERS Safety Report 5800758-0 (Version None)
Quarter: 2008Q3

REPORT INFORMATION
  Report Type: 
  Country: None (occurrence: None)
  Receive Date: 20080703
  Receipt Date: 20080625
  Transmission Date: 20090109
  Serious: Yes (Hospitalization)
  Sender: FDA-Public Use
  Company Number: US-ABBOTT-08P-163-0459545-00

PATIENT
  Sex: Female
  Weight: 65.83 kg

DRUGS (5)
  1. DEPAKOTE [Suspect]
     Indication: DRUG USE FOR UNKNOWN INDICATION
  2. DEPAKOTE ER [Suspect]
     Indication: BIPOLAR DISORDER
  3. DEPAKOTE ER [Suspect]
     Route: 048
     Dates: start: 20070728, end: 20070804
  4. EFFEXOR XR [Concomitant]
     Indication: DEPRESSION
     Route: 048
     Dates: start: 20070801
  5. CLINOPIN [Concomitant]
     Indication: DEPRESSION
     Route: 048
     Dates: start: 20070801

REACTIONS (5)
  - ABASIA [None]
  - ADVERSE DRUG REACTION [None]
  - DYSPHASIA [None]
  - FALL [None]
  - SKIN LACERATION [None]
